FAERS Safety Report 10572923 (Version 1)
Quarter: 2014Q4

REPORT INFORMATION
  Report Type: Spontaneous
  Country: AU (occurrence: None)
  Receive Date: 20141106
  Receipt Date: 20141106
  Transmission Date: 20150529
  Serious: Yes (Congenital Anomaly, Other)
  Sender: FDA-Public Use
  Company Number: AU2014GSK011876

PATIENT

DRUGS (1)
  1. AZT [Suspect]
     Active Substance: ZIDOVUDINE
     Indication: HIV INFECTION

REACTIONS (3)
  - Heart disease congenital [None]
  - Foetal exposure during pregnancy [None]
  - Vanishing twin syndrome [None]
